FAERS Safety Report 11400520 (Version 1)
Quarter: 2015Q3

REPORT INFORMATION
  Report Type: Spontaneous
  Country: US (occurrence: US)
  Receive Date: 20150820
  Receipt Date: 20150820
  Transmission Date: 20151125
  Serious: No
  Sender: FDA-Public Use
  Company Number: US-PFIZER INC-2015274562

PATIENT
  Age: 73 Year
  Sex: Female

DRUGS (4)
  1. GABAPENTIN. [Suspect]
     Active Substance: GABAPENTIN
     Indication: ANXIETY
     Dosage: 100 MG, 1X/DAY
     Dates: start: 20150706
  2. NEURONTIN [Suspect]
     Active Substance: GABAPENTIN
     Indication: WEIGHT DECREASED
     Dosage: UNK
     Dates: start: 201507
  3. WELLBUTRIN [Suspect]
     Active Substance: BUPROPION HYDROCHLORIDE
     Indication: ABDOMINAL PAIN
     Dosage: 150 MG, 2X/DAY
     Dates: start: 20150609, end: 20150701
  4. MORPHINE SULFATE. [Suspect]
     Active Substance: MORPHINE SULFATE
     Indication: DEPRESSION
     Dosage: UNK
     Dates: start: 20150625, end: 20150626

REACTIONS (3)
  - Pre-existing condition improved [Unknown]
  - Therapeutic response unexpected [Unknown]
  - Weight decreased [Recovered/Resolved]
